FAERS Safety Report 8518179-9 (Version None)
Quarter: 2012Q3

REPORT INFORMATION
  Report Type: 
  Country: None (occurrence: None)
  Receive Date: 20120718
  Receipt Date: 20111031
  Transmission Date: 20120928
  Serious: No
  Sender: FDA-Public Use
  Company Number: US-BRISTOL-MYERS SQUIBB COMPANY-16180564

PATIENT
  Age: 87 Year
  Sex: Female

DRUGS (3)
  1. SIMVASTATIN [Concomitant]
  2. SYNTHROID [Concomitant]
  3. WARFARIN SODIUM [Suspect]
     Dates: start: 20111017

REACTIONS (1)
  - CONSTIPATION [None]
